FAERS Safety Report 8499719-5 (Version None)
Quarter: 2012Q3

REPORT INFORMATION
  Report Type: 
  Country: None (occurrence: None)
  Receive Date: 20120703
  Receipt Date: 20120703
  Transmission Date: 20120928
  Serious: Yes (Hospitalization)
  Sender: FDA-Public Use
  Company Number: None

PATIENT
  Age: 64 Year
  Sex: Male

DRUGS (1)
  1. ZYTIGA [Suspect]
     Indication: PROSTATE CANCER
     Dosage: 1000MG DAILY PO
     Route: 048
     Dates: start: 20080118, end: 20120613

REACTIONS (2)
  - RENAL DISORDER [None]
  - BLOOD BILIRUBIN ABNORMAL [None]
